FAERS Safety Report 5274983-4 (Version None)
Quarter: 2007Q1

REPORT INFORMATION
  Report Type: 
  Country: None (occurrence: None)
  Receive Date: 20061207
  Receipt Date: 20050104
  Transmission Date: 20070707
  Serious: Yes (Hospitalization)
  Sender: FDA-Public Use
  Company Number: 2005UW00096

PATIENT
  Age: 73 Year
  Sex: Male

DRUGS (9)
  1. TOPROL-XL [Suspect]
     Dates: start: 19970101, end: 20000101
  2. ECOTRIN [Suspect]
     Indication: ANTICOAGULANT THERAPY
     Dates: start: 19970101
  3. ZYRTEC [Suspect]
     Dates: start: 19970101, end: 20000101
  4. UNSPECIFIED HYPERTENSIVE [Suspect]
     Dates: start: 19970101, end: 20000101
  5. COREG [Concomitant]
  6. GLUCOSAMINE [Concomitant]
  7. CENTRUM SILVER [Concomitant]
  8. FOLIC ACID [Concomitant]
  9. BLOOD PRESSURE MEDICATION [Concomitant]

REACTIONS (2)
  - DIZZINESS [None]
  - SYNCOPE [None]
